FAERS Safety Report 9065153 (Version 1)
Quarter: 2013Q1

REPORT INFORMATION
  Report Type: Spontaneous
  Country: US (occurrence: US)
  Receive Date: 20130214
  Receipt Date: 20130214
  Transmission Date: 20140127
  Serious: No
  Sender: FDA-Public Use
  Company Number: US-PFIZER INC-2013059107

PATIENT
  Sex: 0

DRUGS (2)
  1. LYRICA [Suspect]
     Dosage: 150MG TOTAL DAILY
  2. LYRICA [Suspect]
     Dosage: 300 MG TOTAL DAILY

REACTIONS (2)
  - Nausea [Unknown]
  - Vomiting [Unknown]
